FAERS Safety Report 6601069-6 (Version None)
Quarter: 2010Q1

REPORT INFORMATION
  Report Type: 
  Country: None (occurrence: None)
  Receive Date: 20100224
  Receipt Date: 20100224
  Transmission Date: 20100710
  Serious: Yes (Death)
  Sender: FDA-Public Use
  Company Number: None

PATIENT
  Age: 37 Year
  Sex: Female

DRUGS (1)
  1. SOTALOL HCL [Suspect]
     Indication: VENTRICULAR ARRHYTHMIA
     Dosage: 80 MG TAKE 1 TABLET TWICE DAILY

REACTIONS (1)
  - GASTROINTESTINAL MOTILITY DISORDER [None]
